FAERS Safety Report 9485411 (Version 1)
Quarter: 2013Q3

REPORT INFORMATION
  Report Type: Spontaneous
  Country: US (occurrence: US)
  Receive Date: 20130829
  Receipt Date: 20130829
  Transmission Date: 20140515
  Serious: Yes (Hospitalization, Other)
  Sender: FDA-Public Use
  Company Number: US-AMGEN-USASP2013059948

PATIENT
  Age: 52 Year
  Sex: Female

DRUGS (1)
  1. ENBREL [Suspect]
     Indication: RHEUMATOID ARTHRITIS
     Dosage: UNK
     Route: 065
     Dates: start: 1998

REACTIONS (9)
  - Knee arthroplasty [Recovered/Resolved]
  - Jaw fracture [Recovered/Resolved]
  - Tooth injury [Recovered/Resolved]
  - Fall [Recovered/Resolved]
  - Abasia [Recovered/Resolved]
  - Activities of daily living impaired [Recovered/Resolved]
  - Erythema [Not Recovered/Not Resolved]
  - Pain in extremity [Recovered/Resolved]
  - Localised infection [Not Recovered/Not Resolved]
